FAERS Safety Report 9178686 (Version 2)
Quarter: 2019Q4

REPORT INFORMATION
  Report Type: Spontaneous
  Country: SE (occurrence: SE)
  Receive Date: 20121029
  Receipt Date: 20191007
  Transmission Date: 20200122
  Serious: Yes (Hospitalization, Other)
  Sender: FDA-Public Use
  Company Number: SE-SANOFI-AVENTIS-2012SA077476

PATIENT
  Age: 75 Year
  Sex: Male

DRUGS (24)
  1. RAMIPRIL. [Suspect]
     Active Substance: RAMIPRIL
     Dosage: UNK UNK,UNK
     Route: 065
  2. OXIS [Concomitant]
     Active Substance: FORMOTEROL FUMARATE
     Dosage: UNK
  3. ALVEDON [Concomitant]
     Active Substance: ACETAMINOPHEN
     Dosage: STRENGTH; 665 MG
  4. KALCIPOS-D [Concomitant]
     Active Substance: CALCIUM CARBONATE\CHOLECALCIFEROL
     Dosage: UNK
  5. ALENDRONAT ACCORD [Concomitant]
     Dosage: UNK
  6. PURINETHOL [Suspect]
     Active Substance: MERCAPTOPURINE
     Indication: COLITIS ULCERATIVE
     Dosage: UNK UNK,UNK
     Route: 065
  7. PREDNISOLON PFIZER [Concomitant]
     Active Substance: PREDNISOLONE
     Dosage: UNK
  8. SPIRONOLACTONE. [Concomitant]
     Active Substance: SPIRONOLACTONE
     Dosage: UNK
  9. ASACOL [Concomitant]
     Active Substance: MESALAMINE
     Dosage: STRENGTH; 800 MG
  10. SPIRIVA [Concomitant]
     Active Substance: TIOTROPIUM BROMIDE MONOHYDRATE
     Dosage: UNK
  11. NORSPAN [Concomitant]
     Active Substance: BUPRENORPHINE
     Dosage: UNK
  12. ZOLPIDEM [Concomitant]
     Active Substance: ZOLPIDEM TARTRATE
     Dosage: UNK
  13. SOTALOL. [Concomitant]
     Active Substance: SOTALOL
     Dosage: UNK
  14. FUROSEMIDE. [Suspect]
     Active Substance: FUROSEMIDE
     Indication: PRODUCT USED FOR UNKNOWN INDICATION
     Dosage: UNK UNK,UNK
     Route: 065
  15. TRAMADOL ACTAVIS [Concomitant]
     Active Substance: TRAMADOL
     Dosage: UNK
  16. ETHYLMORPHINE [Concomitant]
     Active Substance: ETHYLMORPHINE
     Dosage: UNK, UNK
  17. FUROSEMIDE. [Suspect]
     Active Substance: FUROSEMIDE
     Indication: PRODUCT USED FOR UNKNOWN INDICATION
     Dosage: UNK UNK, UNK
     Route: 065
  18. METFORMIN [Concomitant]
     Active Substance: METFORMIN HYDROCHLORIDE
     Dosage: UNK
  19. FOLACIN [CALCIUM PHOSPHATE;FOLIC ACID] [Concomitant]
     Active Substance: CALCIUM PHOSPHATE\FOLIC ACID
     Dosage: STRENGTH; 5 MG
  20. TROMBYL [Concomitant]
     Active Substance: ASPIRIN
     Dosage: STRENGTH; 75 MG
  21. ACETYLCYSTEIN MEDA [Concomitant]
     Dosage: UNK
     Route: 065
  22. ALLOPURINOL. [Concomitant]
     Active Substance: ALLOPURINOL
     Dosage: UNK
  23. CRESTOR [Concomitant]
     Active Substance: ROSUVASTATIN CALCIUM
     Dosage: UNK
  24. OMEPRAZOLE. [Concomitant]
     Active Substance: OMEPRAZOLE
     Dosage: UNK

REACTIONS (4)
  - Gamma-glutamyltransferase increased [Unknown]
  - Hepatotoxicity [Unknown]
  - Acute kidney injury [Unknown]
  - Blood creatinine increased [Unknown]

NARRATIVE: CASE EVENT DATE: 20120723
